FAERS Safety Report 7324818-0 (Version None)
Quarter: 2011Q1

REPORT INFORMATION
  Report Type: 
  Country: None (occurrence: None)
  Receive Date: 20110301
  Receipt Date: 20110225
  Transmission Date: 20110831
  Serious: Yes (Hospitalization)
  Sender: FDA-Public Use
  Company Number: IT-PFIZER INC-2011031850

PATIENT
  Age: 60 Year
  Sex: Male

DRUGS (1)
  1. DOSTINEX [Suspect]
     Indication: SECRETORY ADENOMA OF PITUITARY
     Dosage: 0.75 MG, 1X/DAY
     Route: 048
     Dates: start: 20101017

REACTIONS (6)
  - SOPOR [None]
  - BRADYCARDIA [None]
  - TREMOR [None]
  - PSYCHOMOTOR SKILLS IMPAIRED [None]
  - HEPATIC ENCEPHALOPATHY [None]
  - INCORRECT DOSE ADMINISTERED [None]
